FAERS Safety Report 16763813 (Version 1)
Quarter: 2019Q3

REPORT INFORMATION
  Report Type: Report from Study
  Country: US (occurrence: US)
  Receive Date: 20190902
  Receipt Date: 20190902
  Transmission Date: 20191005
  Serious: Yes (Other)
  Sender: FDA-Public Use
  Company Number: US-PFIZER INC-2019374251

PATIENT

DRUGS (4)
  1. DIPHENHYDRAMINE HCL [Suspect]
     Active Substance: DIPHENHYDRAMINE HYDROCHLORIDE
     Indication: VOMITING
  2. HALOPERIDOL. [Suspect]
     Active Substance: HALOPERIDOL
     Indication: VOMITING
  3. HALOPERIDOL. [Suspect]
     Active Substance: HALOPERIDOL
     Indication: ANTIEMETIC SUPPORTIVE CARE
     Dosage: 15 MG, UNK
     Route: 042
  4. DIPHENHYDRAMINE HCL [Suspect]
     Active Substance: DIPHENHYDRAMINE HYDROCHLORIDE
     Indication: ANTIEMETIC SUPPORTIVE CARE
     Dosage: 25 MG, UNK
     Route: 042

REACTIONS (1)
  - Dystonia [Recovered/Resolved]
